FAERS Safety Report 24602440 (Version 2)
Quarter: 2024Q4

REPORT INFORMATION
  Report Type: Spontaneous
  Country: CA (occurrence: CA)
  Receive Date: 20241111
  Receipt Date: 20241111
  Transmission Date: 20250114
  Serious: Yes (Death, Life-Threatening, Hospitalization, Disabling, Other)
  Sender: ALEXION PHARMACEUTICALS
  Company Number: CA-AstraZeneca-CH-00710570A

PATIENT
  Age: 44 Year
  Weight: 68 kg

DRUGS (114)
  1. QUETIAPINE FUMARATE [Suspect]
     Active Substance: QUETIAPINE FUMARATE
     Indication: Rheumatoid arthritis
     Dosage: UNK
  2. QUETIAPINE FUMARATE [Suspect]
     Active Substance: QUETIAPINE FUMARATE
     Dosage: UNK
  3. QUETIAPINE FUMARATE [Suspect]
     Active Substance: QUETIAPINE FUMARATE
     Dosage: UNK
  4. QUETIAPINE FUMARATE [Suspect]
     Active Substance: QUETIAPINE FUMARATE
     Dosage: UNK
  5. QUETIAPINE FUMARATE [Suspect]
     Active Substance: QUETIAPINE FUMARATE
     Dosage: UNK
  6. QUETIAPINE FUMARATE [Suspect]
     Active Substance: QUETIAPINE FUMARATE
     Dosage: UNK
  7. QUETIAPINE FUMARATE [Suspect]
     Active Substance: QUETIAPINE FUMARATE
     Dosage: UNK
  8. QUETIAPINE FUMARATE [Suspect]
     Active Substance: QUETIAPINE FUMARATE
     Dosage: UNK
  9. RAMIPRIL [Suspect]
     Active Substance: RAMIPRIL
     Indication: Product used for unknown indication
  10. RAMIPRIL [Suspect]
     Active Substance: RAMIPRIL
  11. RAMIPRIL [Suspect]
     Active Substance: RAMIPRIL
  12. RAMIPRIL [Suspect]
     Active Substance: RAMIPRIL
  13. ACETAMINOPHEN [Suspect]
     Active Substance: ACETAMINOPHEN
     Route: 065
  14. ACETAMINOPHEN [Suspect]
     Active Substance: ACETAMINOPHEN
  15. ACETAMINOPHEN [Suspect]
     Active Substance: ACETAMINOPHEN
     Route: 065
  16. ACETAMINOPHEN [Suspect]
     Active Substance: ACETAMINOPHEN
  17. ACTEMRA [Suspect]
     Active Substance: TOCILIZUMAB
     Dosage: UNK
  18. ACTEMRA [Suspect]
     Active Substance: TOCILIZUMAB
     Dosage: UNK
     Route: 065
  19. ADALIMUMAB [Suspect]
     Active Substance: ADALIMUMAB
  20. ADALIMUMAB [Suspect]
     Active Substance: ADALIMUMAB
     Route: 065
  21. ALENDRONATE [Suspect]
     Active Substance: ALENDRONATE SODIUM
  22. ALENDRONATE [Suspect]
     Active Substance: ALENDRONATE SODIUM
     Route: 065
  23. ALENDRONIC ACID [Suspect]
     Active Substance: ALENDRONIC ACID
  24. ALENDRONIC ACID [Suspect]
     Active Substance: ALENDRONIC ACID
     Route: 065
  25. PANTOPRAZOLE SODIUM [Suspect]
     Active Substance: PANTOPRAZOLE SODIUM
  26. PANTOPRAZOLE SODIUM [Suspect]
     Active Substance: PANTOPRAZOLE SODIUM
     Route: 065
  27. DICLOFENAC SODIUM [Suspect]
     Active Substance: DICLOFENAC SODIUM
  28. DICLOFENAC SODIUM [Suspect]
     Active Substance: DICLOFENAC SODIUM
     Route: 065
  29. HYDROCORTISONE [Suspect]
     Active Substance: HYDROCORTISONE
  30. PREDNISONE [Suspect]
     Active Substance: PREDNISONE
  31. ARAVA [Suspect]
     Active Substance: LEFLUNOMIDE
  32. CALCIUM [Suspect]
     Active Substance: CALCIUM
  33. CALCIUM [Suspect]
     Active Substance: CALCIUM
  34. CALCIUM CARBONATE [Suspect]
     Active Substance: CALCIUM CARBONATE
  35. CALCIUM GLUBIONATE [Suspect]
     Active Substance: CALCIUM GLUBIONATE
  36. CELEBREX [Suspect]
     Active Substance: CELECOXIB
  37. CELECOXIB [Suspect]
     Active Substance: CELECOXIB
  38. CELECOXIB [Suspect]
     Active Substance: CELECOXIB
  39. CETIRIZINE [Suspect]
     Active Substance: CETIRIZINE HYDROCHLORIDE
  40. CETRIMIDE [Suspect]
     Active Substance: CETRIMIDE
  41. CHLORAPREP [Suspect]
     Active Substance: CHLORHEXIDINE GLUCONATE\ISOPROPYL ALCOHOL
  42. CHLORHEXIDINE [Suspect]
     Active Substance: CHLORHEXIDINE
  43. CHOLECALCIFEROL [Suspect]
     Active Substance: CHOLECALCIFEROL
  44. CIMZIA [Suspect]
     Active Substance: CERTOLIZUMAB PEGOL
  45. CORTISONE [Suspect]
     Active Substance: CORTISONE
  46. CORTISONE ACETATE [Suspect]
     Active Substance: CORTISONE ACETATE
  47. COSENTYX [Suspect]
     Active Substance: SECUKINUMAB
  48. DESOXIMETASONE [Suspect]
     Active Substance: DESOXIMETASONE
  49. DICLOFENAC [Suspect]
     Active Substance: DICLOFENAC
  50. DICLOFENAC SODIUM [Suspect]
     Active Substance: DICLOFENAC SODIUM
  51. DOXYCYCLINE [Suspect]
     Active Substance: DOXYCYCLINE
  52. ENBREL [Suspect]
     Active Substance: ETANERCEPT
  53. ETANERCEPT [Suspect]
     Active Substance: ETANERCEPT
  54. FOLIC ACID [Suspect]
     Active Substance: FOLIC ACID
  55. FOLIC ACID [Suspect]
     Active Substance: FOLIC ACID
  56. FOSAMAX [Suspect]
     Active Substance: ALENDRONATE SODIUM
  57. HUMIRA [Suspect]
     Active Substance: ADALIMUMAB
  58. SODIUM CACODYLATE [Suspect]
     Active Substance: SODIUM CACODYLATE
  59. HYDROCORTISONE [Suspect]
     Active Substance: HYDROCORTISONE
  60. HYDROCORTISONE [Suspect]
     Active Substance: HYDROCORTISONE
  61. HYDROCORTISONE BUTYRATE [Suspect]
     Active Substance: HYDROCORTISONE BUTYRATE
  62. HYDROCORTISONE [Suspect]
     Active Substance: HYDROCORTISONE
  63. HYDROXYCHLOROQUINE [Suspect]
     Active Substance: HYDROXYCHLOROQUINE
  64. IBUPROFEN [Suspect]
     Active Substance: IBUPROFEN
  65. INFLIXIMAB [Suspect]
     Active Substance: INFLIXIMAB
  66. KEVZARA [Suspect]
     Active Substance: SARILUMAB
  67. LEFLUNOMIDE [Suspect]
     Active Substance: LEFLUNOMIDE
  68. FLUMETHASONE PIVALATE [Suspect]
     Active Substance: FLUMETHASONE PIVALATE
  69. LYRICA [Suspect]
     Active Substance: PREGABALIN
  70. METHOTREXATE [Suspect]
     Active Substance: METHOTREXATE
  71. MOXIFLOXACIN [Suspect]
     Active Substance: MOXIFLOXACIN
  72. MYCOPHENOLATE MOFETIL [Suspect]
     Active Substance: MYCOPHENOLATE MOFETIL
  73. NAPROXEN [Suspect]
     Active Substance: NAPROXEN
  74. NAPROXEN SODIUM [Suspect]
     Active Substance: NAPROXEN SODIUM
  75. ORENCIA [Suspect]
     Active Substance: ABATACEPT
  76. OTEZLA [Suspect]
     Active Substance: APREMILAST
  77. OXYCODONE [Suspect]
     Active Substance: OXYCODONE
  78. OXYCODONE TEREPHTHALATE [Suspect]
     Active Substance: OXYCODONE TEREPHTHALATE
  79. OXYCODONE TEREPHTHALATE [Suspect]
     Active Substance: OXYCODONE TEREPHTHALATE
     Route: 065
  80. OXYCODONE [Suspect]
     Active Substance: OXYCODONE
  81. OXYCODONE [Suspect]
     Active Substance: OXYCODONE
     Route: 065
  82. PANTOPRAZOLE [Suspect]
     Active Substance: PANTOPRAZOLE
  83. PANTOPRAZOLE [Suspect]
     Active Substance: PANTOPRAZOLE
     Route: 065
  84. PHTHALYLSULFATHIAZOLE [Suspect]
     Active Substance: PHTHALYLSULFATHIAZOLE
  85. PHTHALYLSULFATHIAZOLE [Suspect]
     Active Substance: PHTHALYLSULFATHIAZOLE
     Route: 065
  86. PLAQUENIL [Suspect]
     Active Substance: HYDROXYCHLOROQUINE SULFATE
  87. PLAQUENIL [Suspect]
     Active Substance: HYDROXYCHLOROQUINE SULFATE
     Route: 065
  88. PREDNISONE [Suspect]
     Active Substance: PREDNISONE
  89. PREDNISONE [Suspect]
     Active Substance: PREDNISONE
     Route: 065
  90. PSEUDOEPHEDRINE [Suspect]
     Active Substance: PSEUDOEPHEDRINE
  91. CETIRIZINE HYDROCHLORIDE [Suspect]
     Active Substance: CETIRIZINE HYDROCHLORIDE
  92. REMICADE [Suspect]
     Active Substance: INFLIXIMAB
  93. RITUXAN [Suspect]
     Active Substance: RITUXIMAB
  94. RITUXIMAB [Suspect]
     Active Substance: RITUXIMAB
  95. RITUXIMAB [Suspect]
     Active Substance: RITUXIMAB
  96. DIETARY SUPPLEMENT\HERBALS [Suspect]
     Active Substance: DIETARY SUPPLEMENT\HERBALS
  97. SULFASALAZINE [Suspect]
     Active Substance: SULFASALAZINE
  98. SARILUMAB [Suspect]
     Active Substance: SARILUMAB
  99. SARILUMAB [Suspect]
     Active Substance: SARILUMAB
     Route: 065
  100. SIMPONI [Suspect]
     Active Substance: GOLIMUMAB
  101. MEDROL [Suspect]
     Active Substance: METHYLPREDNISOLONE
  102. MEDROL [Suspect]
     Active Substance: METHYLPREDNISOLONE
     Route: 065
  103. STELARA [Suspect]
     Active Substance: USTEKINUMAB
  104. STELARA [Suspect]
     Active Substance: USTEKINUMAB
     Route: 065
  105. SULFAMETHOXAZOLE [Suspect]
     Active Substance: SULFAMETHOXAZOLE
  106. SULFASALAZINE [Suspect]
     Active Substance: SULFASALAZINE
  107. SULFAMETHOXAZOLE AND TRIMETHOPRIM [Suspect]
     Active Substance: SULFAMETHOXAZOLE\TRIMETHOPRIM
  108. TOPICORT [Suspect]
     Active Substance: DESOXIMETASONE
  109. VITAMIN C [Suspect]
     Active Substance: ASCORBIC ACID
  110. VOLTAREN [Suspect]
     Active Substance: DICLOFENAC SODIUM
  111. VOLTAREN [Suspect]
     Active Substance: DICLOFENAC SODIUM
     Route: 065
  112. PREDNISONE [Suspect]
     Active Substance: PREDNISONE
  113. PREDNISONE [Suspect]
     Active Substance: PREDNISONE
     Route: 065
  114. XELJANZ [Suspect]
     Active Substance: TOFACITINIB CITRATE

REACTIONS (109)
  - Abdominal discomfort [Fatal]
  - Abdominal pain upper [Fatal]
  - Alopecia [Fatal]
  - Anti-cyclic citrullinated peptide antibody positive [Fatal]
  - Anxiety [Fatal]
  - Arthralgia [Fatal]
  - Arthropathy [Fatal]
  - Asthenia [Fatal]
  - Asthma [Fatal]
  - Autoimmune disorder [Fatal]
  - Blister [Fatal]
  - Blood cholesterol increased [Fatal]
  - Bursitis [Fatal]
  - C-reactive protein [Fatal]
  - Chest pain [Fatal]
  - Condition aggravated [Fatal]
  - Confusional state [Fatal]
  - Contraindicated product administered [Fatal]
  - Contusion [Fatal]
  - Decreased appetite [Fatal]
  - Deep vein thrombosis postoperative [Fatal]
  - Diarrhoea [Fatal]
  - Discomfort [Fatal]
  - Dizziness [Fatal]
  - Drug ineffective [Fatal]
  - Drug intolerance [Fatal]
  - Dry mouth [Fatal]
  - Duodenal ulcer perforation [Fatal]
  - Dyspnoea [Fatal]
  - Facet joint syndrome [Fatal]
  - Fatigue [Fatal]
  - Fibromyalgia [Fatal]
  - Folliculitis [Fatal]
  - Gait inability [Fatal]
  - Gastrointestinal disorder [Fatal]
  - General physical health deterioration [Fatal]
  - Glossodynia [Fatal]
  - Hand deformity [Fatal]
  - Headache [Fatal]
  - Helicobacter infection [Fatal]
  - Hepatic enzyme increased [Fatal]
  - Hip arthroplasty [Fatal]
  - Hypersensitivity [Fatal]
  - Hypertension [Fatal]
  - Hypoaesthesia [Fatal]
  - Ill-defined disorder [Fatal]
  - Impaired healing [Fatal]
  - Infection [Fatal]
  - Inflammation [Fatal]
  - Infusion related reaction [Fatal]
  - Injury [Fatal]
  - Intentional product use issue [Fatal]
  - Irritable bowel syndrome [Fatal]
  - Joint range of motion decreased [Fatal]
  - Joint swelling [Fatal]
  - Knee arthroplasty [Fatal]
  - Lip dry [Fatal]
  - Live birth [Fatal]
  - Liver disorder [Fatal]
  - Lower limb fracture [Fatal]
  - Lower respiratory tract infection [Fatal]
  - Lung disorder [Fatal]
  - Malaise [Fatal]
  - Maternal exposure during pregnancy [Fatal]
  - Maternal exposure during pregnancy [Fatal]
  - Mobility decreased [Fatal]
  - Muscle injury [Fatal]
  - Muscle spasms [Fatal]
  - Musculoskeletal pain [Fatal]
  - Musculoskeletal stiffness [Fatal]
  - Nasopharyngitis [Fatal]
  - Night sweats [Fatal]
  - Obesity [Fatal]
  - Oedema [Fatal]
  - Off label use [Fatal]
  - Osteoarthritis [Fatal]
  - Pain [Fatal]
  - Paraesthesia [Fatal]
  - Pemphigus [Fatal]
  - Pericarditis [Fatal]
  - Peripheral swelling [Fatal]
  - Peripheral venous disease [Fatal]
  - Prescribed overdose [Fatal]
  - Product use issue [Fatal]
  - Pruritus [Fatal]
  - Psoriatic arthropathy [Fatal]
  - Pyrexia [Fatal]
  - Rash [Fatal]
  - Rheumatic fever [Fatal]
  - Rheumatoid arthritis [Fatal]
  - Rheumatoid factor positive [Fatal]
  - Road traffic accident [Fatal]
  - Sciatica [Fatal]
  - Sinusitis [Fatal]
  - Sleep disorder due to general medical condition, insomnia type [Fatal]
  - Stomatitis [Fatal]
  - Swelling [Fatal]
  - Swollen joint count increased [Fatal]
  - Synovitis [Fatal]
  - Systemic lupus erythematosus [Fatal]
  - Therapeutic product effect decreased [Fatal]
  - Therapy non-responder [Fatal]
  - Treatment failure [Fatal]
  - Type 2 diabetes mellitus [Fatal]
  - Urticaria [Fatal]
  - Vomiting [Fatal]
  - Weight increased [Fatal]
  - Wheezing [Fatal]
  - Wound [Fatal]
